FAERS Safety Report 9288783 (Version 4)
Quarter: 2013Q3

REPORT INFORMATION
  Report Type: Report from Study
  Country: US (occurrence: US)
  Receive Date: 20130514
  Receipt Date: 20130920
  Transmission Date: 20140515
  Serious: Yes (Death, Hospitalization, Other)
  Sender: FDA-Public Use
  Company Number: US-ASTRAZENECA-2013SE32243

PATIENT
  Age: 24701 Day
  Sex: Female

DRUGS (13)
  1. AZD6140 [Suspect]
     Indication: CORONARY ARTERY DISEASE
     Route: 048
     Dates: start: 20120427, end: 20130301
  2. PLENTAL [Concomitant]
     Indication: INTERMITTENT CLAUDICATION
     Route: 048
  3. METFORMIN [Concomitant]
     Indication: TYPE 2 DIABETES MELLITUS
     Route: 048
  4. NORVASC [Concomitant]
     Indication: HYPERTENSION
     Route: 048
  5. GEMFIBROZIL [Concomitant]
     Indication: HYPERLIPIDAEMIA
     Route: 048
  6. HYDROCHLOROTHIAZIDE [Concomitant]
     Indication: HYPERTENSION
     Route: 048
  7. LOSARTIN [Concomitant]
     Indication: HYPERTENSION
     Route: 048
  8. ZOCOR [Concomitant]
     Indication: HYPERLIPIDAEMIA
     Route: 048
  9. JANUVIA [Concomitant]
     Indication: TYPE 2 DIABETES MELLITUS
     Route: 048
  10. LOPRESSOR [Concomitant]
     Indication: HYPERTENSION
     Route: 048
  11. VALIUM [Concomitant]
     Indication: ANXIETY
     Route: 048
  12. PRAVASTATIN [Concomitant]
     Indication: HYPERLIPIDAEMIA
     Route: 048
  13. ASA [Concomitant]
     Route: 048

REACTIONS (2)
  - Pulmonary oedema [Fatal]
  - Acute myocardial infarction [Fatal]
